FAERS Safety Report 21642500 (Version 1)
Quarter: 2022Q4

REPORT INFORMATION
  Report Type: Report from Study
  Country: US (occurrence: US)
  Receive Date: 20221125
  Receipt Date: 20221125
  Transmission Date: 20230113
  Serious: No
  Sender: FDA-Public Use
  Company Number: US-ABBVIE-20K-163-3292263-00

PATIENT
  Age: 18 Year
  Sex: Female

DRUGS (62)
  1. HUMIRA [Suspect]
     Active Substance: ADALIMUMAB
     Indication: Crohn^s disease
     Route: 058
     Dates: start: 20130508, end: 201904
  2. HUMIRA [Suspect]
     Active Substance: ADALIMUMAB
     Dosage: TIME INTERVAL: TOTAL: INDUCTION DOSE
     Route: 058
     Dates: start: 20190420, end: 20190420
  3. HUMIRA [Suspect]
     Active Substance: ADALIMUMAB
     Dosage: TIME INTERVAL: TOTAL: INDUCTION DOSE
     Route: 058
     Dates: start: 20190507, end: 20190507
  4. HUMIRA [Suspect]
     Active Substance: ADALIMUMAB
     Route: 058
     Dates: start: 2019, end: 201906
  5. MERCAPTOPURINE [Suspect]
     Active Substance: MERCAPTOPURINE
     Indication: Crohn^s disease
     Route: 048
     Dates: start: 20101213, end: 201906
  6. CEPHALEXIN [Concomitant]
     Active Substance: CEPHALEXIN
     Indication: Impetigo
     Route: 048
     Dates: start: 2019, end: 2019
  7. HYDROCORTISONE [Concomitant]
     Active Substance: HYDROCORTISONE
     Indication: Crohn^s disease
     Dosage: 1 APPLICATION
     Route: 061
     Dates: start: 20130220
  8. NYSTATIN [Concomitant]
     Active Substance: NYSTATIN
     Indication: Stoma site irritation
     Dosage: 1 APPLICATION
     Route: 061
     Dates: start: 2019, end: 2019
  9. NYSTATIN [Concomitant]
     Active Substance: NYSTATIN
     Indication: Stoma site irritation
     Dosage: TIME INTERVAL: AS NECESSARY: 1 APPLICATION
     Route: 061
     Dates: start: 2019
  10. PIPERACILLIN AND TAZOBACTAM [Concomitant]
     Active Substance: PIPERACILLIN SODIUM\TAZOBACTAM SODIUM
     Indication: Antibiotic therapy
     Dosage: CONTINUOUS
     Route: 042
     Dates: start: 20190418, end: 20190421
  11. ACETAMINOPHEN [Concomitant]
     Active Substance: ACETAMINOPHEN
     Indication: Pain
     Dosage: TIME INTERVAL: AS NECESSARY
     Route: 048
     Dates: start: 20190418
  12. BUSPIRONE [Concomitant]
     Active Substance: BUSPIRONE HYDROCHLORIDE
     Indication: Anxiety
     Route: 048
     Dates: start: 20190419
  13. GLUCAGON [Concomitant]
     Active Substance: GLUCAGON
     Indication: X-ray gastrointestinal tract
     Dosage: TIME INTERVAL: TOTAL
     Route: 042
     Dates: start: 20190419, end: 20190419
  14. GLUCAGON [Concomitant]
     Active Substance: GLUCAGON
     Indication: X-ray gastrointestinal tract
     Dosage: TIME INTERVAL: TOTAL
     Route: 042
     Dates: start: 20191106, end: 20191107
  15. SORBITOL [Concomitant]
     Active Substance: SORBITOL
     Indication: Magnetic resonance imaging abdominal
     Dosage: TIME INTERVAL: TOTAL
     Route: 048
     Dates: start: 20191106, end: 20191106
  16. GADOBUTROL [Concomitant]
     Active Substance: GADOBUTROL
     Indication: Magnetic resonance imaging
     Dosage: TIME INTERVAL: CYCLICAL
     Route: 042
     Dates: start: 20190419, end: 20190419
  17. GADOBUTROL [Concomitant]
     Active Substance: GADOBUTROL
     Indication: Magnetic resonance imaging
     Dosage: TIME INTERVAL: CYCLICAL
     Route: 042
     Dates: start: 20191106, end: 20191106
  18. USTEKINUMAB [Concomitant]
     Active Substance: USTEKINUMAB
     Indication: Crohn^s disease
     Dosage: TIME INTERVAL: TOTAL
     Route: 042
     Dates: start: 20190618, end: 20190618
  19. USTEKINUMAB [Concomitant]
     Active Substance: USTEKINUMAB
     Indication: Crohn^s disease
     Route: 058
     Dates: start: 2019
  20. METHYLPREDNISOLONE [Concomitant]
     Active Substance: METHYLPREDNISOLONE
     Indication: Premedication
     Dosage: TIME INTERVAL: TOTAL
     Route: 058
     Dates: start: 20190618, end: 20190618
  21. METHYLPREDNISOLONE [Concomitant]
     Active Substance: METHYLPREDNISOLONE
     Indication: Premedication
     Route: 042
     Dates: start: 20191218, end: 20191220
  22. FLAGYL [Concomitant]
     Active Substance: METRONIDAZOLE\METRONIDAZOLE HYDROCHLORIDE
     Indication: Segmental diverticular colitis
     Route: 048
     Dates: start: 201904, end: 201905
  23. VIENVA TM [Concomitant]
     Active Substance: ETHINYL ESTRADIOL\LEVONORGESTREL
     Indication: Product used for unknown indication
     Route: 048
     Dates: start: 2019
  24. SERTRALINE [Concomitant]
     Active Substance: SERTRALINE HYDROCHLORIDE
     Indication: Post-traumatic stress disorder
     Route: 048
     Dates: start: 2019, end: 2019
  25. SERTRALINE [Concomitant]
     Active Substance: SERTRALINE HYDROCHLORIDE
     Indication: Post-traumatic stress disorder
     Route: 048
     Dates: start: 2018, end: 2019
  26. SERTRALINE [Concomitant]
     Active Substance: SERTRALINE HYDROCHLORIDE
     Indication: Post-traumatic stress disorder
     Route: 048
     Dates: start: 2019, end: 2019
  27. SERTRALINE [Concomitant]
     Active Substance: SERTRALINE HYDROCHLORIDE
     Indication: Post-traumatic stress disorder
     Route: 048
     Dates: start: 2019
  28. METRONIDAZOLE [Concomitant]
     Active Substance: METRONIDAZOLE
     Indication: Fistula
     Route: 048
     Dates: start: 2019, end: 2019
  29. TACROLIMUS [Concomitant]
     Active Substance: TACROLIMUS
     Indication: Medical device site fistula
     Dosage: 1 APPLICATION
     Route: 061
     Dates: start: 2019
  30. CLOBETASOL PROPIONATE [Concomitant]
     Active Substance: CLOBETASOL PROPIONATE
     Indication: Dermatitis contact
     Dosage: APPLY SPARINGLY TO AFFECTED AREAS ON THE EARS; APPLICATION
     Route: 061
     Dates: start: 2019
  31. FERRIC CARBOXYMALTOSE [Concomitant]
     Active Substance: FERRIC CARBOXYMALTOSE
     Indication: Iron deficiency anaemia
     Dosage: TIME INTERVAL: TOTAL
     Route: 042
     Dates: start: 20190513, end: 20190513
  32. CHLORHEXIDINE GLUCONATE [Concomitant]
     Active Substance: CHLORHEXIDINE GLUCONATE
     Indication: Staphylococcal skin infection
     Dosage: LIQUID
     Route: 061
     Dates: start: 2019, end: 2019
  33. AZITHROMYCIN [Concomitant]
     Active Substance: AZITHROMYCIN
     Indication: Pneumonia
     Route: 048
     Dates: start: 2019, end: 2019
  34. AZITHROMYCIN [Concomitant]
     Active Substance: AZITHROMYCIN
     Indication: Pneumonia
     Route: 048
     Dates: start: 2019, end: 2019
  35. ACETAMINOPHEN\CAFFEINE [Concomitant]
     Active Substance: ACETAMINOPHEN\CAFFEINE
     Indication: Tension headache
     Dosage: TIME INTERVAL: AS NECESSARY
     Route: 048
     Dates: start: 20150527, end: 2019
  36. ACETAMINOPHEN\CAFFEINE [Concomitant]
     Active Substance: ACETAMINOPHEN\CAFFEINE
     Indication: Tension headache
     Dosage: TIME INTERVAL: AS NECESSARY
     Route: 048
     Dates: start: 2019, end: 2019
  37. LACTATED RINGERS SOLUTION [Concomitant]
     Active Substance: CALCIUM CHLORIDE\POTASSIUM CHLORIDE\SODIUM CHLORIDE\SODIUM LACTATE
     Indication: Fluid replacement
     Dosage: TIME INTERVAL: TOTAL: 1-5 MG PER KG PER HOUR
     Route: 042
     Dates: start: 20191107, end: 20191107
  38. LACTATED RINGERS SOLUTION [Concomitant]
     Active Substance: CALCIUM CHLORIDE\POTASSIUM CHLORIDE\SODIUM CHLORIDE\SODIUM LACTATE
     Indication: Fluid replacement
     Dosage: 1-5 ML/KG/HR; CONTINUOUS
     Route: 042
     Dates: start: 20191218, end: 20191218
  39. SODIUM CHLORIDE [Concomitant]
     Active Substance: SODIUM CHLORIDE
     Indication: Fluid replacement
     Dosage: INTERMITTENT BOLUS
     Route: 042
     Dates: start: 20191106, end: 20191106
  40. SODIUM CHLORIDE [Concomitant]
     Active Substance: SODIUM CHLORIDE
     Indication: Fluid replacement
     Dosage: TIME INTERVAL: TOTAL
     Route: 042
     Dates: start: 20191217, end: 20191217
  41. CHOLECALCIFEROL [Concomitant]
     Active Substance: CHOLECALCIFEROL
     Indication: Vitamin D decreased
     Route: 048
     Dates: start: 20191106
  42. GLUCAGON [Concomitant]
     Active Substance: GLUCAGON
     Indication: X-ray gastrointestinal tract
     Dosage: TIME INTERVAL: TOTAL
     Route: 042
     Dates: start: 20191106, end: 20191107
  43. DEXTROSE\SODIUM CHLORIDE [Concomitant]
     Active Substance: DEXTROSE\SODIUM CHLORIDE
     Indication: Fluid replacement
     Dosage: 20 MEQ/L; CONTINUOUS
     Route: 042
     Dates: start: 20191217, end: 20191223
  44. LIDOCAINE [Concomitant]
     Active Substance: LIDOCAINE
     Indication: Product used for unknown indication
     Dosage: TIME INTERVAL: TOTAL: J TIP
     Dates: start: 20191217, end: 20191218
  45. SUCRALFATE [Concomitant]
     Active Substance: SUCRALFATE
     Indication: Crohn^s disease
     Route: 048
     Dates: start: 20191219, end: 20191223
  46. PREDNISONE [Concomitant]
     Active Substance: PREDNISONE
     Indication: Crohn^s disease
     Route: 048
     Dates: start: 20191221
  47. CALCIUM CARBONATE [Concomitant]
     Active Substance: CALCIUM CARBONATE
     Indication: Dyspepsia
     Dosage: AS REQUIRED
     Route: 048
     Dates: start: 20191220, end: 20191223
  48. OMEPRAZOLE [Concomitant]
     Active Substance: OMEPRAZOLE
     Indication: Gastritis
     Route: 048
     Dates: start: 20191221, end: 20191223
  49. ALBUTEROL [Concomitant]
     Active Substance: ALBUTEROL
     Indication: Wheezing
     Dosage: TIME INTERVAL: AS NECESSARY
     Route: 055
     Dates: start: 20170809
  50. CETIRIZINE [Concomitant]
     Active Substance: CETIRIZINE HYDROCHLORIDE
     Indication: Hypersensitivity
     Route: 048
     Dates: start: 20170807
  51. FLUDROCORTISONE [Concomitant]
     Active Substance: FLUDROCORTISONE
     Indication: Syncope
     Route: 048
     Dates: start: 20171107
  52. FLUOCINONIDE [Concomitant]
     Active Substance: FLUOCINONIDE
     Indication: Eczema
     Dosage: 1 APPLICATION
     Route: 061
     Dates: start: 20170907
  53. LACTOBACILLUS ACIDOPHILUS [Concomitant]
     Active Substance: LACTOBACILLUS ACIDOPHILUS
     Indication: Irritable bowel syndrome
     Route: 048
     Dates: start: 20130320, end: 2019
  54. MULTIVITAMINES WITH IRON [Concomitant]
     Indication: Supplementation therapy
     Route: 048
     Dates: start: 20170615, end: 2019
  55. ONDANSETRON [Concomitant]
     Active Substance: ONDANSETRON
     Indication: Vomiting
     Dosage: TIME INTERVAL: AS NECESSARY
     Route: 048
     Dates: start: 20150530
  56. PROPRANOLOL [Concomitant]
     Active Substance: PROPRANOLOL HYDROCHLORIDE
     Indication: Tension headache
     Route: 048
     Dates: start: 20170602
  57. RANITIDINE [Concomitant]
     Active Substance: RANITIDINE
     Indication: Dyspepsia
     Dosage: TIME INTERVAL: AS NECESSARY
     Route: 048
     Dates: start: 20160219
  58. TRIAMCINOLONE [Concomitant]
     Active Substance: TRIAMCINOLONE
     Indication: Medical device site dermatitis
     Dosage: TIME INTERVAL: AS NECESSARY: 1 APPLICATION
     Route: 061
     Dates: start: 20160403
  59. OXYCODONE [Concomitant]
     Active Substance: OXYCODONE
     Indication: Pain
     Dosage: TIME INTERVAL: AS NECESSARY
     Route: 048
     Dates: start: 20180715
  60. LEVONORGESTREL AND ETHINYL ESTRADIOL [Concomitant]
     Active Substance: ETHINYL ESTRADIOL\LEVONORGESTREL
     Indication: Dysmenorrhoea
     Route: 048
     Dates: start: 2018
  61. MUPIROCIN [Concomitant]
     Active Substance: MUPIROCIN
     Indication: Impetigo
     Dosage: 1 APPLICATION
     Route: 061
     Dates: start: 2018
  62. ACETAMINOPHEN [Concomitant]
     Active Substance: ACETAMINOPHEN
     Indication: Pain
     Dosage: TIME INTERVAL: AS NECESSARY
     Route: 048
     Dates: start: 20191221, end: 20191223

REACTIONS (1)
  - Rectal stenosis [Recovered/Resolved]

NARRATIVE: CASE EVENT DATE: 20191101
